FAERS Safety Report 16373958 (Version 1)
Quarter: 2019Q2

REPORT INFORMATION
  Report Type: Spontaneous
  Country: US (occurrence: US)
  Receive Date: 20190530
  Receipt Date: 20190530
  Transmission Date: 20190711
  Serious: Yes (Other)
  Sender: FDA-Public Use
  Company Number: US-TEVA-2019-US-1055693

PATIENT
  Sex: Female

DRUGS (7)
  1. TEMOZOLOMIDE. [Suspect]
     Active Substance: TEMOZOLOMIDE
     Route: 064
  2. DECADRON [Suspect]
     Active Substance: DEXAMETHASONE
     Route: 064
  3. 5-FLUOROURACIL [Suspect]
     Active Substance: FLUOROURACIL
     Route: 064
  4. CAPECITABINE. [Suspect]
     Active Substance: CAPECITABINE
     Route: 064
  5. LAPATINIB [Suspect]
     Active Substance: LAPATINIB
     Route: 064
  6. ADRIAMYCIN [Suspect]
     Active Substance: DOXORUBICIN HYDROCHLORIDE
     Route: 064
  7. CYCLOPHOSPHAMIDE. [Suspect]
     Active Substance: CYCLOPHOSPHAMIDE
     Route: 064

REACTIONS (3)
  - Foetal growth restriction [Unknown]
  - Low birth weight baby [Unknown]
  - Foetal exposure during pregnancy [Unknown]
